FAERS Safety Report 24185165 (Version 1)
Quarter: 2024Q3

REPORT INFORMATION
  Report Type: Spontaneous
  Country: US (occurrence: US)
  Receive Date: 20240807
  Receipt Date: 20240807
  Transmission Date: 20241016
  Serious: No
  Sender: ABBVIE
  Company Number: US-ABBVIE-5869991

PATIENT
  Age: 45 Year
  Sex: Female
  Weight: 68 kg

DRUGS (1)
  1. LATISSE [Suspect]
     Active Substance: BIMATOPROST
     Indication: Hypotrichosis
     Dosage: 1 DROP ON EACH EYE FOR BOTH EYES
     Route: 061
     Dates: start: 202404, end: 20240709

REACTIONS (1)
  - Madarosis [Recovering/Resolving]

NARRATIVE: CASE EVENT DATE: 20240601
